FAERS Safety Report 5182928-0 (Version None)
Quarter: 2006Q4

REPORT INFORMATION
  Report Type: 
  Country: None (occurrence: None)
  Receive Date: 20061212
  Receipt Date: 20061201
  Transmission Date: 20070319
  Serious: No
  Sender: FDA-Public Use
  Company Number: 2006112042

PATIENT
  Age: 73 Year
  Sex: Female

DRUGS (1)
  1. NORVASC [Suspect]
     Indication: HYPERTENSION
     Dosage: (DAILY) ORAL
     Route: 048
     Dates: start: 20060721, end: 20060906

REACTIONS (12)
  - BLOOD ALKALINE PHOSPHATASE INCREASED [None]
  - BURNING SENSATION [None]
  - ERYTHEMA [None]
  - JOINT SWELLING [None]
  - LIGAMENT DISORDER [None]
  - LYMPHADENOPATHY [None]
  - OEDEMA PERIPHERAL [None]
  - PAIN IN EXTREMITY [None]
  - PALPITATIONS [None]
  - PARAESTHESIA [None]
  - RASH PRURITIC [None]
  - SENSORY DISTURBANCE [None]
